FAERS Safety Report 19475854 (Version 3)
Quarter: 2021Q3

REPORT INFORMATION
  Report Type: Spontaneous
  Country: US (occurrence: US)
  Receive Date: 20210630
  Receipt Date: 20210811
  Transmission Date: 20211014
  Serious: Yes (Other)
  Sender: FDA-Public Use
  Company Number: US-GLAXOSMITHKLINE-US2021138646

PATIENT
  Sex: Male

DRUGS (2)
  1. TRELEGY ELLIPTA [Suspect]
     Active Substance: FLUTICASONE FUROATE\UMECLIDINIUM BROMIDE\VILANTEROL TRIFENATATE
     Indication: PRODUCT USED FOR UNKNOWN INDICATION
     Dosage: 1 PUFF(S), QD  100/62.5/25
     Route: 055
  2. HORMONE [Concomitant]
     Active Substance: UNSPECIFIED INGREDIENT
     Indication: PRODUCT USED FOR UNKNOWN INDICATION
     Dosage: UNK
     Route: 065

REACTIONS (13)
  - Dyspnoea [Not Recovered/Not Resolved]
  - Oesophageal operation [Unknown]
  - Weight decreased [Unknown]
  - Stent placement [Unknown]
  - Tremor [Not Recovered/Not Resolved]
  - Oesophageal achalasia [Unknown]
  - Bronchitis [Unknown]
  - Hyperhidrosis [Not Recovered/Not Resolved]
  - Therapeutic product effect incomplete [Unknown]
  - Hypoglycaemia [Unknown]
  - Neuropathy peripheral [Unknown]
  - Arthritis [Unknown]
  - Gynaecomastia [Unknown]
